FAERS Safety Report 7296541-2 (Version None)
Quarter: 2011Q1

REPORT INFORMATION
  Report Type: 
  Country: None (occurrence: None)
  Receive Date: 20110216
  Receipt Date: 20110204
  Transmission Date: 20110831
  Serious: Yes (Hospitalization)
  Sender: FDA-Public Use
  Company Number: PHHY2011BE09317

PATIENT
  Sex: Male

DRUGS (5)
  1. CRESTOR [Concomitant]
  2. RASILEZ [Suspect]
     Indication: HYPERTENSION
     Dosage: 300 MG, DAILY
     Dates: start: 20100101
  3. PLAVIX [Concomitant]
  4. ASAFLOW [Concomitant]
     Dates: start: 20080601
  5. COVERSYL [Concomitant]

REACTIONS (2)
  - OESOPHAGEAL ULCER [None]
  - MUSCULOSKELETAL PAIN [None]
